FAERS Safety Report 18205255 (Version 1)
Quarter: 2020Q3

REPORT INFORMATION
  Report Type: Spontaneous
  Country: US (occurrence: US)
  Receive Date: 20200828
  Receipt Date: 20200828
  Transmission Date: 20201103
  Serious: Yes (Other)
  Sender: FDA-Public Use
  Company Number: US-AUROBINDO-AUR-APL-2017-36367

PATIENT
  Age: 52 Year
  Sex: Male

DRUGS (10)
  1. CLOZAPINE. [Interacting]
     Active Substance: CLOZAPINE
     Dosage: 600 MILLIGRAM, DAILY
     Route: 065
  2. CLOZAPINE. [Suspect]
     Active Substance: CLOZAPINE
     Indication: SCHIZOAFFECTIVE DISORDER BIPOLAR TYPE
     Dosage: 600 MILLIGRAM, DAILY
     Route: 065
  3. CLOZAPINE. [Interacting]
     Active Substance: CLOZAPINE
     Dosage: 600 MILLIGRAM
  4. CLOZAPINE. [Interacting]
     Active Substance: CLOZAPINE
     Dosage: 700 MILLIGRAM, DAILY
     Route: 065
  5. PROPRANOLOL HYDROCHLORIDE. [Interacting]
     Active Substance: PROPRANOLOL HYDROCHLORIDE
     Dosage: TAPERED DOSE
     Route: 065
  6. PROPRANOLOL HYDROCHLORIDE. [Interacting]
     Active Substance: PROPRANOLOL HYDROCHLORIDE
     Indication: HYPERTENSION
     Dosage: 30 MILLIGRAM, ONCE A DAY
     Route: 065
  7. PROPRANOLOL HYDROCHLORIDE. [Interacting]
     Active Substance: PROPRANOLOL HYDROCHLORIDE
     Dosage: 20 MILLIGRAM, DAILY
     Route: 065
  8. PROPRANOLOL HYDROCHLORIDE. [Interacting]
     Active Substance: PROPRANOLOL HYDROCHLORIDE
  9. CLOZAPINE. [Interacting]
     Active Substance: CLOZAPINE
     Dosage: 700 MILLIGRAM, DAILY
     Route: 065
  10. PROPRANOLOL HYDROCHLORIDE. [Interacting]
     Active Substance: PROPRANOLOL HYDROCHLORIDE
     Dosage: TAPERED DOSE

REACTIONS (2)
  - Drug interaction [Unknown]
  - Drug level changed [Unknown]
